FAERS Safety Report 10970880 (Version 9)
Quarter: 2016Q1

REPORT INFORMATION
  Report Type: Spontaneous
  Country: CO (occurrence: CO)
  Receive Date: 20150331
  Receipt Date: 20160201
  Transmission Date: 20160525
  Serious: Yes (Death, Hospitalization, Other)
  Sender: FDA-Public Use
  Company Number: CO-JNJFOC-20150314226

PATIENT
  Age: 22 Year
  Sex: Male
  Weight: 46 kg

DRUGS (9)
  1. ACETAMINOPHEN. [Concomitant]
     Active Substance: ACETAMINOPHEN
     Route: 048
  2. TRAMADOL. [Concomitant]
     Active Substance: TRAMADOL
     Route: 048
  3. CIPROFLOXACIN. [Concomitant]
     Active Substance: CIPROFLOXACIN
     Route: 065
     Dates: start: 201504
  4. STELARA [Suspect]
     Active Substance: USTEKINUMAB
     Indication: PSORIASIS
     Route: 058
     Dates: start: 20121228
  5. ENOXAPARIN [Concomitant]
     Active Substance: ENOXAPARIN
     Route: 065
     Dates: start: 201504
  6. SERTRALINE [Concomitant]
     Active Substance: SERTRALINE HYDROCHLORIDE
     Route: 065
     Dates: start: 201504
  7. PREDNISOLONE. [Concomitant]
     Active Substance: PREDNISOLONE
     Route: 048
     Dates: start: 20150401
  8. STELARA [Suspect]
     Active Substance: USTEKINUMAB
     Indication: PSORIATIC ARTHROPATHY
     Route: 058
     Dates: start: 20121228
  9. ATENOLOL. [Concomitant]
     Active Substance: ATENOLOL
     Route: 065
     Dates: start: 201504

REACTIONS (20)
  - Dermatomyositis [Unknown]
  - Mitral valve replacement [Not Recovered/Not Resolved]
  - Blood pressure increased [Unknown]
  - Purulent discharge [Not Recovered/Not Resolved]
  - Hypotension [Unknown]
  - Wound complication [Unknown]
  - Tonsillitis [Not Recovered/Not Resolved]
  - Depression [Not Recovered/Not Resolved]
  - Lung infection [Unknown]
  - Postoperative wound infection [Unknown]
  - Psoriasis [Not Recovered/Not Resolved]
  - Death [Fatal]
  - Pain [Unknown]
  - Impaired healing [Not Recovered/Not Resolved]
  - Joint effusion [Unknown]
  - Viral infection [Not Recovered/Not Resolved]
  - Pneumonia [Recovered/Resolved]
  - Herpes virus infection [Not Recovered/Not Resolved]
  - Calcinosis [Unknown]
  - Fluid retention [Unknown]

NARRATIVE: CASE EVENT DATE: 20150316
